FAERS Safety Report 4554859-8 (Version None)
Quarter: 2004Q4

REPORT INFORMATION
  Report Type: 
  Country: None (occurrence: None)
  Receive Date: 20041222
  Receipt Date: 20040922
  Transmission Date: 20050328
  Serious: No
  Sender: FDA-Public Use
  Company Number: 209219

PATIENT
  Age: 62 Year
  Sex: Male
  Weight: 95.2 kg

DRUGS (4)
  1. AVASTIN [Suspect]
     Indication: COLORECTAL CANCER
     Dosage: 350 MG, Q2W, INTRAVENOUS
     Route: 042
     Dates: start: 20040426
  2. FLUOROURACIL [Concomitant]
  3. OXALIPLATIN (OXALIPLATIN) [Concomitant]
  4. LEUCOVORIN CALCIUM [Concomitant]

REACTIONS (1)
  - TREMOR [None]
